FAERS Safety Report 8767231 (Version 2)
Quarter: 2012Q4

REPORT INFORMATION
  Report Type: 
  Country: IT (occurrence: IT)
  Receive Date: 20120904
  Receipt Date: 20120904
  Transmission Date: 20130627
  Serious: Yes (Hospitalization)
  Sender: FDA-Public Use
  Company Number: IT-GLAXOSMITHKLINE-B0686830A

PATIENT
  Age: 46 Year
  Sex: Female

DRUGS (2)
  1. TYVERB [Suspect]
     Indication: BREAST CANCER
     Dosage: 1250MG per day
     Route: 065
     Dates: start: 20100824, end: 20101026
  2. XELODA [Concomitant]
     Indication: BREAST CANCER
     Route: 048
     Dates: start: 20100824, end: 20101026

REACTIONS (1)
  - Pulmonary embolism [Unknown]
